FAERS Safety Report 6196797-3 (Version None)
Quarter: 2009Q2

REPORT INFORMATION
  Report Type: 
  Country: None (occurrence: None)
  Receive Date: 20090520
  Receipt Date: 20090515
  Transmission Date: 20091009
  Serious: Yes (Death, Hospitalization)
  Sender: FDA-Public Use
  Company Number: PHHY2009CH18800

PATIENT
  Age: 83 Year
  Sex: Female

DRUGS (8)
  1. SINTROM [Interacting]
     Indication: ATRIAL FIBRILLATION
     Dosage: 2 MG/DAY
     Dates: end: 20081024
  2. SANDOSTATIN [Suspect]
     Dosage: 0.10 MG/DAY
     Route: 058
     Dates: start: 20081009, end: 20081022
  3. SANDOSTATIN [Interacting]
     Dosage: 0.15 MG/DAY
     Route: 058
  4. DAFALGAN [Interacting]
     Dosage: 2000 MG/DAY
     Dates: start: 20081021, end: 20081023
  5. MORPHINE [Concomitant]
     Dosage: 15 MG/DAY
     Route: 058
     Dates: start: 20081019, end: 20081027
  6. NEXIUM [Concomitant]
     Dosage: 40 MG/DAY
  7. CITALOPRAM HYDROBROMIDE [Concomitant]
     Dosage: 10 MG/DAY
     Dates: end: 20081027
  8. DILZEM ^ELAN^ [Concomitant]
     Dosage: 240 MG/DAY

REACTIONS (3)
  - DRUG INTERACTION [None]
  - INTERNATIONAL NORMALISED RATIO INCREASED [None]
  - MALIGNANT NEOPLASM PROGRESSION [None]
